FAERS Safety Report 16216200 (Version 2)
Quarter: 2019Q2

REPORT INFORMATION
  Report Type: Spontaneous
  Country: DE (occurrence: DE)
  Receive Date: 20190419
  Receipt Date: 20190517
  Transmission Date: 20190711
  Serious: Yes (Other)
  Sender: FDA-Public Use
  Company Number: PHHY2019DE086673

PATIENT
  Sex: Female

DRUGS (2)
  1. METOHEXAL SUCC [Suspect]
     Active Substance: METOPROLOL SUCCINATE
     Indication: PRODUCT USED FOR UNKNOWN INDICATION
     Dosage: 1 DF, BID
     Route: 065
     Dates: start: 201808
  2. ELIQUIS [Concomitant]
     Active Substance: APIXABAN
     Indication: PRODUCT USED FOR UNKNOWN INDICATION
     Dosage: UNK
     Route: 065

REACTIONS (8)
  - Heart rate decreased [Unknown]
  - Limb injury [Unknown]
  - Syncope [Unknown]
  - Loss of consciousness [Unknown]
  - Cardiovascular disorder [Unknown]
  - Inappropriate schedule of product administration [Unknown]
  - Feeling drunk [Unknown]
  - Fall [Unknown]

NARRATIVE: CASE EVENT DATE: 2018
